FAERS Safety Report 6024675-9 (Version None)
Quarter: 2008Q4

REPORT INFORMATION
  Report Type: 
  Country: None (occurrence: None)
  Receive Date: 20081230
  Receipt Date: 20081230
  Transmission Date: 20090506
  Serious: Yes (Life-Threatening)
  Sender: FDA-Public Use
  Company Number: None

PATIENT
  Sex: Male
  Weight: 80 kg

DRUGS (4)
  1. FLUDARABINE PHOSPHATE [Suspect]
     Indication: ACUTE MYELOID LEUKAEMIA
     Dosage: 60MG DAILY IV
     Route: 042
     Dates: start: 20080117, end: 20080121
  2. THIOTEPA [Suspect]
     Dosage: 370 DAILY IV
     Route: 042
     Dates: start: 20080117, end: 20080119
  3. ANTITHMOCYTE GLOBULIN [Concomitant]
  4. TOTAL BODY IRRADIATION [Concomitant]

REACTIONS (5)
  - CARDIAC ARREST [None]
  - CONVULSION [None]
  - DIALYSIS [None]
  - INFECTION [None]
  - RENAL IMPAIRMENT [None]
